FAERS Safety Report 8899494 (Version 1)
Quarter: 2012Q4

REPORT INFORMATION
  Report Type: 
  Country: US (occurrence: US)
  Receive Date: 20121108
  Receipt Date: 20121108
  Transmission Date: 20130627
  Serious: No
  Sender: FDA-Public Use
  Company Number: US-AMGEN-USASP2012032816

PATIENT
  Age: 49 Year
  Sex: Female
  Weight: 109.75 kg

DRUGS (8)
  1. ENBREL [Suspect]
     Indication: PRODUCT USED FOR UNKNOWN INDICATION
     Dosage: 50 mg, qwk
     Route: 058
  2. CYMBALTA [Concomitant]
     Dosage: 20 mg, UNK
  3. METHOTREXATE [Concomitant]
     Dosage: 2.5 mg, UNK
  4. VICODIN ES [Concomitant]
  5. SYNTHROID [Concomitant]
     Dosage: 50 mug, UNK
  6. ASPIRIN [Concomitant]
     Dosage: 81 mg, UNK
  7. HYDROCHLOROTHIAZIDE [Concomitant]
     Dosage: 25 mg, UNK
  8. FOLIC ACID [Concomitant]

REACTIONS (1)
  - Tooth extraction [Unknown]
